FAERS Safety Report 24612867 (Version 1)
Quarter: 2024Q4

REPORT INFORMATION
  Report Type: Spontaneous
  Country: US (occurrence: None)
  Receive Date: 20241112
  Receipt Date: 20241112
  Transmission Date: 20250114
  Serious: Yes (Life-Threatening, Hospitalization)
  Sender: Public
  Company Number: None

PATIENT
  Age: 56 Year
  Sex: Male
  Weight: 90 kg

DRUGS (1)
  1. VARENICLINE [Suspect]
     Active Substance: VARENICLINE
     Indication: Smoking cessation therapy
     Dosage: 1.00 MG
     Dates: start: 20240625, end: 20240708

REACTIONS (3)
  - Depression [None]
  - Suicide attempt [None]
  - Suicidal ideation [None]

NARRATIVE: CASE EVENT DATE: 20240708
